FAERS Safety Report 5066916-0 (Version None)
Quarter: 2006Q3

REPORT INFORMATION
  Report Type: 
  Country: None (occurrence: None)
  Receive Date: 20060726
  Receipt Date: 20060720
  Transmission Date: 20061208
  Serious: Yes (Hospitalization, Other)
  Sender: FDA-Public Use
  Company Number: THQ2006A00581

PATIENT
  Age: 72 Year
  Sex: Female

DRUGS (10)
  1. ACTOS [Suspect]
     Indication: DIABETES MELLITUS
     Dosage: 30 MG, PER ORAL
     Route: 048
     Dates: start: 20040101, end: 20040101
  2. GLUCOPHAGE [Concomitant]
  3. DIABETA [Concomitant]
  4. MICARDIS [Concomitant]
  5. ASPIRIN [Concomitant]
  6. CLONAZEPAM [Concomitant]
  7. EFFEXOR [Concomitant]
  8. PANTOPRAZOLE SODIUM [Concomitant]
  9. IRON [Concomitant]
  10. CYANOCOBALAMIN [Concomitant]

REACTIONS (1)
  - PERICARDIAL EFFUSION [None]
